FAERS Safety Report 7413428-2 (Version None)
Quarter: 2011Q2

REPORT INFORMATION
  Report Type: 
  Country: None (occurrence: None)
  Receive Date: 20110413
  Receipt Date: 20110401
  Transmission Date: 20111010
  Serious: Yes (Life-Threatening, Hospitalization)
  Sender: FDA-Public Use
  Company Number: DE-ELI_LILLY_AND_COMPANY-DE201103006049

PATIENT
  Age: 66 Year
  Sex: Male
  Weight: 117 kg

DRUGS (8)
  1. NEBIVOLOL HCL [Concomitant]
     Indication: HYPERTENSION
     Dosage: 5 MG, UNK
     Route: 048
     Dates: start: 20100501
  2. ASPIRIN [Concomitant]
     Indication: METABOLIC SYNDROME
     Dosage: 100 MG, QD
     Route: 048
     Dates: start: 20100801
  3. SIMVASTATIN [Concomitant]
     Indication: METABOLIC SYNDROME
     Dosage: UNK, QD
     Route: 048
     Dates: start: 20100312
  4. CLOPIDOGREL [Concomitant]
     Indication: CORONARY ARTERY DISEASE
     Dosage: 75 MG, QD
     Route: 048
     Dates: start: 20100501
  5. HYDROCHLOROTHIAZDE TAB [Concomitant]
     Indication: HYPERTENSION
     Dosage: 25 MG, UNK
     Route: 048
     Dates: start: 20100521
  6. BYETTA [Suspect]
     Indication: DIABETES MELLITUS
     Dosage: 5 UG, BID
     Route: 058
     Dates: start: 20100222, end: 20100910
  7. RAMIPRIL [Concomitant]
     Indication: HYPERTENSION
     Dosage: 5 MG, UNK
     Route: 048
     Dates: start: 20100521
  8. XELEVIA [Concomitant]
     Indication: DIABETES MELLITUS
     Dosage: 100 MG, QD
     Route: 048
     Dates: start: 20100222

REACTIONS (9)
  - GASTROENTERITIS [None]
  - VOMITING [None]
  - GENERAL PHYSICAL CONDITION ABNORMAL [None]
  - HYPONATRAEMIA [None]
  - NAUSEA [None]
  - DEHYDRATION [None]
  - LEUKOCYTOSIS [None]
  - RENAL FAILURE [None]
  - DIARRHOEA [None]
